FAERS Safety Report 6764479-2 (Version None)
Quarter: 2010Q2

REPORT INFORMATION
  Report Type: 
  Country: None (occurrence: None)
  Receive Date: 20100610
  Receipt Date: 20100531
  Transmission Date: 20101027
  Serious: Yes (Death, Hospitalization, Other)
  Sender: FDA-Public Use
  Company Number: FI-BAXTER-2010BH011529

PATIENT
  Age: 56 Year
  Sex: Female

DRUGS (11)
  1. ENDOXAN BAXTER [Suspect]
     Indication: PREMEDICATION
     Route: 048
     Dates: start: 20070803, end: 20080501
  2. ENDOXAN BAXTER [Suspect]
     Indication: ACUTE LYMPHOCYTIC LEUKAEMIA
     Route: 048
     Dates: start: 20070803, end: 20080501
  3. ENDOXAN BAXTER [Suspect]
     Route: 042
     Dates: start: 20090107, end: 20090109
  4. ENDOXAN BAXTER [Suspect]
     Route: 042
     Dates: start: 20090107, end: 20090109
  5. FARESTON [Suspect]
     Indication: BREAST CANCER RECURRENT
     Route: 048
     Dates: start: 20080719, end: 20090104
  6. DOCETAXEL [Suspect]
     Indication: PREMEDICATION
     Route: 065
     Dates: start: 20080502
  7. FURTULON [Suspect]
     Indication: PREMEDICATION
     Route: 048
     Dates: start: 20070803, end: 20080501
  8. HYSRONE H [Suspect]
     Indication: PREMEDICATION
     Route: 048
     Dates: start: 20070803, end: 20080501
  9. TRASTUZUMAB [Concomitant]
     Indication: DRUG USE FOR UNKNOWN INDICATION
     Route: 065
     Dates: start: 20080805, end: 20081226
  10. ZOMETA [Concomitant]
     Indication: DRUG USE FOR UNKNOWN INDICATION
     Route: 065
     Dates: start: 20081121, end: 20081219
  11. CHONDROITIN SULFATE [Concomitant]
     Indication: ANAEMIA
     Route: 042
     Dates: start: 20081209, end: 20081216

REACTIONS (15)
  - ACUTE LYMPHOCYTIC LEUKAEMIA [None]
  - BLOOD ALBUMIN DECREASED [None]
  - BLOOD ALKALINE PHOSPHATASE INCREASED [None]
  - BLOOD CREATININE DECREASED [None]
  - BLOOD GLUCOSE DECREASED [None]
  - BLOOD LACTATE DEHYDROGENASE INCREASED [None]
  - BLOOD SODIUM DECREASED [None]
  - BLOOD UREA DECREASED [None]
  - GAMMA-GLUTAMYLTRANSFERASE INCREASED [None]
  - HAEMATOCRIT DECREASED [None]
  - HAEMOGLOBIN DECREASED [None]
  - INFECTION [None]
  - PLATELET COUNT DECREASED [None]
  - RED BLOOD CELL COUNT DECREASED [None]
  - WHITE BLOOD CELL COUNT DECREASED [None]
